FAERS Safety Report 5098999-6 (Version None)
Quarter: 2006Q3

REPORT INFORMATION
  Report Type: 
  Country: None (occurrence: None)
  Receive Date: 20060731
  Receipt Date: 20050809
  Transmission Date: 20061208
  Serious: Yes (Death, Hospitalization)
  Sender: FDA-Public Use
  Company Number: US-2005-014531

PATIENT
  Age: 75 Year
  Sex: Male
  Weight: 100.7 kg

DRUGS (1)
  1. MAGNEVIST [Suspect]
     Indication: NUCLEAR MAGNETIC RESONANCE IMAGING BRAIN
     Dosage: 20 ML, 1 DOSE, INTRAVENOUS
     Route: 042
     Dates: start: 20050211, end: 20050211

REACTIONS (4)
  - ANAPHYLACTIC REACTION [None]
  - COUGH [None]
  - FEELING HOT [None]
  - RESPIRATORY TRACT CONGESTION [None]
